FAERS Safety Report 17147150 (Version 1)
Quarter: 2019Q4

REPORT INFORMATION
  Report Type: Spontaneous
  Country: AT (occurrence: AT)
  Receive Date: 20191212
  Receipt Date: 20191212
  Transmission Date: 20200122
  Serious: Yes (Life-Threatening, Hospitalization)
  Sender: FDA-Public Use
  Company Number: AT-MYLANLABS-2019M1122308

PATIENT
  Age: 22 Year
  Sex: Female

DRUGS (6)
  1. LEVETIRACETAM. [Suspect]
     Active Substance: LEVETIRACETAM
     Indication: STATUS EPILEPTICUS
     Dosage: 1000 MG, 2X/DAY (EVERY 12 H)
     Route: 048
  2. GABAPENTIN. [Suspect]
     Active Substance: GABAPENTIN
     Indication: STATUS EPILEPTICUS
     Dosage: 800 MG, EVERY 6 H
  3. THIOPENTONE SODIUM [Suspect]
     Active Substance: THIOPENTAL SODIUM
     Indication: ANAESTHESIA
     Dosage: UNK
  4. LORAZEPAM. [Suspect]
     Active Substance: LORAZEPAM
     Indication: STATUS EPILEPTICUS
     Dosage: 2 MG, 4X/DAY (EVERY 6 H)
     Route: 042
  5. PHENYTOIN SODIUM. [Suspect]
     Active Substance: PHENYTOIN SODIUM
     Indication: STATUS EPILEPTICUS
     Dosage: 250 MG, 3X/DAY (EVERY 8 H)
     Route: 042
  6. LORAZEPAM. [Suspect]
     Active Substance: LORAZEPAM
     Dosage: 8 MILLIGRAM UNK
     Route: 042

REACTIONS (1)
  - Drug resistance [Recovered/Resolved]
